FAERS Safety Report 9462224 (Version 1)
Quarter: 2013Q3

REPORT INFORMATION
  Report Type: Spontaneous
  Country: US (occurrence: US)
  Receive Date: 20130816
  Receipt Date: 20130816
  Transmission Date: 20140515
  Serious: Yes (Congenital Anomaly, Other)
  Sender: FDA-Public Use
  Company Number: US-ELI_LILLY_AND_COMPANY-US201308004451

PATIENT
  Sex: 0

DRUGS (1)
  1. PROZAC [Suspect]
     Route: 064

REACTIONS (3)
  - Congenital cardiovascular anomaly [Recovered/Resolved]
  - Speech disorder developmental [Unknown]
  - Foetal exposure during pregnancy [Unknown]
